FAERS Safety Report 8971561 (Version 3)
Quarter: 2013Q1

REPORT INFORMATION
  Report Type: Report from Study
  Country: US (occurrence: US)
  Receive Date: 20121217
  Receipt Date: 20130115
  Transmission Date: 20140127
  Serious: Yes (Hospitalization)
  Sender: FDA-Public Use
  Company Number: US-US-EMD SERONO, INC.-7181609

PATIENT
  Age: 57 Year
  Sex: Female
  Weight: 47 kg

DRUGS (2)
  1. REBIF [Suspect]
     Indication: MULTIPLE SCLEROSIS
     Route: 058
     Dates: start: 20120415
  2. OXYCODONE [Concomitant]
     Indication: PAIN
     Dosage: 5/525
     Route: 048

REACTIONS (2)
  - Infection [Recovered/Resolved]
  - Injection site haemorrhage [Recovered/Resolved]
